FAERS Safety Report 11558358 (Version 1)
Quarter: 2015Q3

REPORT INFORMATION
  Report Type: Spontaneous
  Country: US (occurrence: None)
  Receive Date: 20150925
  Receipt Date: 20150925
  Transmission Date: 20151125
  Serious: Yes (Disabling)
  Sender: FDA-Public Use
  Company Number: None

PATIENT
  Age: 75 Year
  Sex: Female
  Weight: 52.16 kg

DRUGS (8)
  1. VIT B [Concomitant]
     Active Substance: VITAMINS
  2. NORCO [Suspect]
     Active Substance: ACETAMINOPHEN\HYDROCODONE BITARTRATE
     Indication: PROCEDURAL PAIN
     Dosage: I PO Q8HRS. PRN THREE TIMES DAILY TAKEN BY MOUTH
     Route: 048
     Dates: start: 20150811, end: 20150816
  3. SYNTHROID [Concomitant]
     Active Substance: LEVOTHYROXINE SODIUM
  4. RESTORIL [Concomitant]
     Active Substance: TEMAZEPAM
  5. LISINOPRIL. [Concomitant]
     Active Substance: LISINOPRIL
  6. VITAMIN C [Concomitant]
     Active Substance: ASCORBIC ACID
  7. CALCIUM/MAGNESIUM [Concomitant]
  8. FISH OIL [Concomitant]
     Active Substance: FISH OIL

REACTIONS (6)
  - Decreased appetite [None]
  - Poor quality drug administered [None]
  - Drug dispensing error [None]
  - Amnesia [None]
  - Weight decreased [None]
  - Tremor [None]

NARRATIVE: CASE EVENT DATE: 20150811
